FAERS Safety Report 8234782-8 (Version None)
Quarter: 2012Q1

REPORT INFORMATION
  Report Type: 
  Country: None (occurrence: None)
  Receive Date: 20120326
  Receipt Date: 20120313
  Transmission Date: 20120608
  Serious: Yes (Death, Other)
  Sender: FDA-Public Use
  Company Number: US-SANOFI-AVENTIS-2012SA017658

PATIENT
  Age: 28 Year
  Sex: Male

DRUGS (6)
  1. AMBIEN [Suspect]
     Route: 048
  2. HYDROCODONE [Suspect]
  3. MOMETASONE FUROATE [Concomitant]
  4. MORPHINE SUL TAB [Suspect]
  5. ACETAMINOPHEN [Suspect]
  6. CYCLOBENZAPRINE HCL [Suspect]

REACTIONS (16)
  - TOXICITY TO VARIOUS AGENTS [None]
  - ACCIDENTAL EXPOSURE [None]
  - DRUG INTERACTION [None]
  - SOMNAMBULISM [None]
  - PLEURAL EFFUSION [None]
  - PULMONARY OEDEMA [None]
  - DEPRESSION [None]
  - SPLEEN CONGESTION [None]
  - ARRHYTHMIA [None]
  - HEPATIC CONGESTION [None]
  - DRUG DEPENDENCE [None]
  - UNEVALUABLE EVENT [None]
  - PULMONARY CONGESTION [None]
  - RESPIRATORY DEPRESSION [None]
  - SUICIDAL IDEATION [None]
  - ANXIETY [None]
